FAERS Safety Report 8212983-2 (Version None)
Quarter: 2012Q1

REPORT INFORMATION
  Report Type: 
  Country: None (occurrence: None)
  Receive Date: 20120315
  Receipt Date: 20120312
  Transmission Date: 20120608
  Serious: Yes (Hospitalization, Other)
  Sender: FDA-Public Use
  Company Number: FR-PFIZER INC-2012064514

PATIENT
  Age: 67 Year
  Sex: Female

DRUGS (2)
  1. PREVISCAN [Concomitant]
     Dosage: UNK
     Dates: end: 20120301
  2. EFFEXOR XR [Suspect]
     Indication: DEPRESSION
     Dosage: 75 MG, 1X/DAY
     Dates: start: 20120201, end: 20120301

REACTIONS (4)
  - HAEMOGLOBIN DECREASED [None]
  - ACTIVATED PARTIAL THROMBOPLASTIN TIME PROLONGED [None]
  - HAEMATOMA [None]
  - FALL [None]
